FAERS Safety Report 7228432-7 (Version None)
Quarter: 2011Q1

REPORT INFORMATION
  Report Type: 
  Country: None (occurrence: None)
  Receive Date: 20110114
  Receipt Date: 20110106
  Transmission Date: 20110831
  Serious: Yes (Hospitalization, Other)
  Sender: FDA-Public Use
  Company Number: US-MERCK-0708USA03546

PATIENT
  Age: 69 Year
  Sex: Female

DRUGS (4)
  1. FOSAMAX [Suspect]
     Route: 048
     Dates: start: 19990201
  2. FOSAMAX [Suspect]
     Indication: OSTEOPOROSIS
     Route: 048
     Dates: start: 20000101
  3. BONIVA [Concomitant]
     Route: 065
     Dates: start: 20061002, end: 20061201
  4. CALCIUM (UNSPECIFIED) [Concomitant]
     Route: 065

REACTIONS (25)
  - FEMUR FRACTURE [None]
  - CORONARY ARTERY STENOSIS [None]
  - HIP FRACTURE [None]
  - TOOTH ABSCESS [None]
  - HYPERTENSION [None]
  - HYPOTENSION [None]
  - OSTEOARTHRITIS [None]
  - CORONARY ARTERY DISEASE [None]
  - ADVERSE EVENT [None]
  - NERVOUSNESS [None]
  - DECREASED APPETITE [None]
  - CARDIAC DISORDER [None]
  - CORONARY ARTERY OCCLUSION [None]
  - BURSITIS [None]
  - SPINAL OSTEOARTHRITIS [None]
  - HYPERLIPIDAEMIA [None]
  - FALL [None]
  - OSTEONECROSIS OF JAW [None]
  - DIARRHOEA [None]
  - SPINAL FRACTURE [None]
  - HUMERUS FRACTURE [None]
  - BLOOD CALCIUM INCREASED [None]
  - GROIN PAIN [None]
  - CHEST PAIN [None]
  - ACUTE MYOCARDIAL INFARCTION [None]
